FAERS Safety Report 14145769 (Version 1)
Quarter: 2017Q4

REPORT INFORMATION
  Report Type: Report from Study
  Country: AU (occurrence: AU)
  Receive Date: 20171031
  Receipt Date: 20171031
  Transmission Date: 20180321
  Serious: Yes (Hospitalization)
  Sender: FDA-Public Use
  Company Number: PHHO2013AU009485

PATIENT
  Age: 44 Year
  Sex: Male
  Weight: 105 kg

DRUGS (1)
  1. ACZ885 [Suspect]
     Active Substance: CANAKINUMAB
     Indication: INTERMITTENT CLAUDICATION
     Dosage: 50 MG, QUARTERLY
     Route: 058
     Dates: start: 20130717

REACTIONS (1)
  - Influenza [Recovered/Resolved]

NARRATIVE: CASE EVENT DATE: 20130717
